FAERS Safety Report 7178396-X (Version None)
Quarter: 2010Q4

REPORT INFORMATION
  Report Type: 
  Country: None (occurrence: None)
  Receive Date: 20101220
  Receipt Date: 20101216
  Transmission Date: 20110411
  Serious: Yes (Death)
  Sender: FDA-Public Use
  Company Number: IT-ASTRAZENECA-2010SE59488

PATIENT
  Age: 26685 Day
  Sex: Female

DRUGS (7)
  1. ANTRA [Suspect]
     Indication: RHEUMATOID ARTHRITIS
     Route: 048
     Dates: start: 20101002
  2. ROACTEMRA (TOCILIZUMAB) [Suspect]
     Indication: RHEUMATOID ARTHRITIS
     Route: 042
     Dates: start: 20100427, end: 20101028
  3. DELTA-CORTEF [Suspect]
     Indication: RHEUMATOID ARTHRITIS
     Route: 048
     Dates: start: 20100727, end: 20100727
  4. SEACOR (OMEGA 3 TRIGLYCERIDES) [Concomitant]
  5. NERIXIA [Concomitant]
     Route: 030
  6. CALCIUM SANDOZ [Concomitant]
     Route: 048
  7. DIBASE (CHOLECALCIFEROL) [Concomitant]
     Route: 048

REACTIONS (2)
  - ABDOMINAL PAIN [None]
  - ABSCESS [None]
